FAERS Safety Report 7599930-1 (Version None)
Quarter: 2011Q3

REPORT INFORMATION
  Report Type: 
  Country: None (occurrence: None)
  Receive Date: 20110706
  Receipt Date: 20110706
  Transmission Date: 20111222
  Serious: Yes (Life-Threatening, Hospitalization)
  Sender: FDA-Public Use
  Company Number: None

PATIENT
  Sex: Male
  Weight: 74 kg

DRUGS (10)
  1. GLUCOTROL [Concomitant]
  2. CISPLATIN [Suspect]
     Dosage: 137.25 MG
     Dates: end: 20110608
  3. CIPROFLOXACIN HCL [Concomitant]
  4. ALBUTEROL SULFATE AUTOHALER [Concomitant]
  5. COMPAZINE [Concomitant]
  6. FEOSOL [Concomitant]
  7. VICODIN [Concomitant]
  8. ATIVAN [Concomitant]
  9. LISINOPRIL [Concomitant]
  10. DOCETAXEL [Suspect]
     Dosage: 102.4 MG
     Dates: end: 20110608

REACTIONS (3)
  - PULMONARY EMBOLISM [None]
  - DEVICE DISLOCATION [None]
  - BLOOD POTASSIUM DECREASED [None]
